FAERS Safety Report 4582253-2 (Version None)
Quarter: 2005Q1

REPORT INFORMATION
  Report Type: 
  Country: None (occurrence: None)
  Receive Date: 20050127
  Receipt Date: 20040907
  Transmission Date: 20050727
  Serious: No
  Sender: FDA-Public Use
  Company Number: USA040977531

PATIENT
  Age: 32 Year
  Sex: Female
  Weight: 57 kg

DRUGS (6)
  1. STRATTERA [Suspect]
     Indication: ATTENTION DEFICIT/HYPERACTIVITY DISORDER
     Dosage: 60 MG DAY
  2. VITAMIN C [Concomitant]
  3. LICORICE [Concomitant]
  4. CALCIUM GLUCONATE [Concomitant]
  5. EVENING PRIMROSE OIL [Concomitant]
  6. VITAMIN E [Concomitant]

REACTIONS (12)
  - ANGER [None]
  - DEPRESSION [None]
  - FEELING ABNORMAL [None]
  - LETHARGY [None]
  - MOOD SWINGS [None]
  - NAUSEA [None]
  - PARAESTHESIA ORAL [None]
  - RESPIRATORY TRACT CONGESTION [None]
  - SENSITIVITY OF TEETH [None]
  - SINUS HEADACHE [None]
  - SWELLING FACE [None]
  - THINKING ABNORMAL [None]
